FAERS Safety Report 9139654 (Version 1)
Quarter: 2013Q1

REPORT INFORMATION
  Report Type: Spontaneous
  Country: US (occurrence: US)
  Receive Date: 20130305
  Receipt Date: 20130305
  Transmission Date: 20140127
  Serious: No
  Sender: FDA-Public Use
  Company Number: US-ENDO PHARMACEUTICALS INC.-SPLN20110126

PATIENT
  Age: 7 None
  Sex: Male
  Weight: 20.3 kg

DRUGS (1)
  1. SUPPRELIN LA [Suspect]
     Indication: PRECOCIOUS PUBERTY
     Route: 058
     Dates: start: 20111104

REACTIONS (4)
  - Acne [Unknown]
  - Insomnia [Unknown]
  - Headache [Unknown]
  - Vision blurred [Unknown]
